FAERS Safety Report 5214037-6 (Version None)
Quarter: 2007Q1

REPORT INFORMATION
  Report Type: 
  Country: None (occurrence: None)
  Receive Date: 20070122
  Receipt Date: 20070116
  Transmission Date: 20070707
  Serious: Yes (Hospitalization)
  Sender: FDA-Public Use
  Company Number: US-ELI_LILLY_AND_COMPANY-US200609003729

PATIENT
  Age: 37 Year
  Sex: Female
  Weight: 72.108 kg

DRUGS (2)
  1. ZYPREXA [Suspect]
     Indication: BIPOLAR I DISORDER
     Dosage: 10 MG, UNK
     Dates: start: 19960101, end: 19960101
  2. MIRTAZAPINE [Concomitant]
     Dates: start: 20051001

REACTIONS (4)
  - DISEASE RECURRENCE [None]
  - OBESITY [None]
  - OVARIAN CYST [None]
  - WEIGHT INCREASED [None]
